FAERS Safety Report 5917063-4 (Version None)
Quarter: 2008Q4

REPORT INFORMATION
  Report Type: 
  Country: None (occurrence: None)
  Receive Date: 20081014
  Receipt Date: 20081002
  Transmission Date: 20090506
  Serious: Yes (Other)
  Sender: FDA-Public Use
  Company Number: KR-JNJFOC-20080902498

PATIENT
  Sex: Female
  Weight: 62 kg

DRUGS (8)
  1. PALIPERIDONE [Suspect]
     Route: 048
  2. PALIPERIDONE [Suspect]
     Route: 048
  3. PALIPERIDONE [Suspect]
     Indication: SCHIZOPHRENIA
     Route: 048
  4. BENZTROPINE MESYLATE [Concomitant]
     Indication: EXTRAPYRAMIDAL DISORDER
     Route: 048
  5. ATIVAN [Concomitant]
     Indication: SLEEP DISORDER THERAPY
     Route: 048
  6. ATIVAN [Concomitant]
     Indication: ANXIETY
     Route: 048
  7. ESCITALOPRAM [Concomitant]
     Indication: DEPRESSION
     Route: 048
  8. STILNOX [Concomitant]
     Indication: SLEEP DISORDER THERAPY
     Route: 048

REACTIONS (1)
  - HEPATIC STEATOSIS [None]
